FAERS Safety Report 8072821-8 (Version None)
Quarter: 2012Q1

REPORT INFORMATION
  Report Type: 
  Country: None (occurrence: None)
  Receive Date: 20120120
  Receipt Date: 20120112
  Transmission Date: 20120608
  Serious: Yes (Hospitalization)
  Sender: FDA-Public Use
  Company Number: 2011SP053548

PATIENT
  Sex: Male

DRUGS (2)
  1. ACETAMINOPHEN [Concomitant]
  2. PEGATRON (PEGYLATED INTERFERON ALFA-2B W/RIBAVIRIN) [Suspect]
     Indication: HEPATITIS C
     Dates: start: 20110614

REACTIONS (13)
  - INFLUENZA LIKE ILLNESS [None]
  - SKIN DISCOLOURATION [None]
  - DEHYDRATION [None]
  - INJECTION SITE MASS [None]
  - NAUSEA [None]
  - INJECTION SITE EXTRAVASATION [None]
  - HEPATIC INFECTION [None]
  - LETHARGY [None]
  - HEADACHE [None]
  - WEIGHT DECREASED [None]
  - DYSGEUSIA [None]
  - FATIGUE [None]
  - GASTRIC DISORDER [None]
